FAERS Safety Report 24949552 (Version 1)
Quarter: 2025Q1

REPORT INFORMATION
  Report Type: Spontaneous
  Country: US (occurrence: US)
  Receive Date: 20250210
  Receipt Date: 20250210
  Transmission Date: 20250408
  Serious: Yes (Hospitalization)
  Sender: SAGENT PHARMACEUTICALS
  Company Number: US-SAGENT PHARMACEUTICALS-2025SAG000006

PATIENT
  Sex: Male

DRUGS (2)
  1. GEMCITABINE [Suspect]
     Active Substance: GEMCITABINE
     Indication: Adenocarcinoma pancreas
     Route: 065
  2. PACLITAXEL [Suspect]
     Active Substance: PACLITAXEL
     Indication: Adenocarcinoma pancreas
     Route: 065

REACTIONS (1)
  - Myositis [Recovered/Resolved]
